FAERS Safety Report 8796123 (Version 2)
Quarter: 2012Q4

REPORT INFORMATION
  Report Type: 
  Country: DK (occurrence: GB)
  Receive Date: 20120919
  Receipt Date: 20121001
  Transmission Date: 20130627
  Serious: Yes (Disabling)
  Sender: FDA-Public Use
  Company Number: GB-FRI-1000038610

PATIENT
  Sex: Male
  Weight: 101.6 kg

DRUGS (2)
  1. CITALOPRAM [Suspect]
     Indication: OBSESSIVE-COMPULSIVE DISORDER
     Dosage: 40 - 50 mg daily
     Route: 048
     Dates: start: 2004, end: 20120827
  2. QUETIAPINE [Interacting]

REACTIONS (5)
  - Obsessive-compulsive disorder [Not Recovered/Not Resolved]
  - Apathy [Recovering/Resolving]
  - Fatigue [Recovering/Resolving]
  - Abnormal dreams [Recovering/Resolving]
  - Drug interaction [Unknown]
